FAERS Safety Report 16369805 (Version 1)
Quarter: 2019Q2

REPORT INFORMATION
  Report Type: Spontaneous
  Country: SE (occurrence: SE)
  Receive Date: 20190530
  Receipt Date: 20190530
  Transmission Date: 20190711
  Serious: Yes (Hospitalization)
  Sender: FDA-Public Use
  Company Number: SE-TEVA-2019-SE-1055427

PATIENT
  Age: 59 Year
  Sex: Male

DRUGS (1)
  1. NAPROXEN. [Suspect]
     Active Substance: NAPROXEN
     Indication: MUSCULOSKELETAL PAIN
     Dosage: 1000 MILLIGRAM DAILY;
     Dates: start: 20181031, end: 20181106

REACTIONS (1)
  - Oesophageal varices haemorrhage [Recovered/Resolved]

NARRATIVE: CASE EVENT DATE: 20181106
